FAERS Safety Report 22632679 (Version 10)
Quarter: 2024Q2

REPORT INFORMATION
  Report Type: Report from Study
  Country: US (occurrence: US)
  Receive Date: 20230623
  Receipt Date: 20240628
  Transmission Date: 20240715
  Serious: Yes (Other)
  Sender: FDA-Public Use
  Company Number: US-ABBVIE-5298803

PATIENT
  Age: 62 Year
  Sex: Female
  Weight: 55 kg

DRUGS (2)
  1. SKYRIZI [Suspect]
     Active Substance: RISANKIZUMAB-RZAA
     Indication: Psoriasis
     Dosage: LAST ADMIN DATE: 2022
     Route: 058
     Dates: start: 20220411
  2. SKYRIZI [Suspect]
     Active Substance: RISANKIZUMAB-RZAA
     Route: 058
     Dates: start: 20220516

REACTIONS (7)
  - Lymphoma [Unknown]
  - Sleep apnoea syndrome [Unknown]
  - Gastrooesophageal reflux disease [Unknown]
  - Nasopharyngitis [Unknown]
  - Gastrointestinal lymphoma [Not Recovered/Not Resolved]
  - Follicular lymphoma [Unknown]
  - Dyspepsia [Unknown]

NARRATIVE: CASE EVENT DATE: 20230601
